FAERS Safety Report 16792283 (Version 1)
Quarter: 2019Q3

REPORT INFORMATION
  Report Type: Spontaneous
  Country: FR (occurrence: FR)
  Receive Date: 20190910
  Receipt Date: 20190910
  Transmission Date: 20191005
  Serious: Yes (Other)
  Sender: FDA-Public Use
  Company Number: FR-PFIZER INC-2019383955

PATIENT
  Age: 72 Year
  Sex: Female
  Weight: 63 kg

DRUGS (1)
  1. EPIRUBICIN HCL [Suspect]
     Active Substance: EPIRUBICIN HYDROCHLORIDE
     Indication: BREAST CANCER
     Dosage: 100 MG/M2, CYCLIC
     Route: 042
     Dates: start: 2015, end: 2015

REACTIONS (2)
  - Left ventricular dysfunction [Recovering/Resolving]
  - Congestive cardiomyopathy [Unknown]

NARRATIVE: CASE EVENT DATE: 20190205
